FAERS Safety Report 9432797 (Version 1)
Quarter: 2013Q3

REPORT INFORMATION
  Report Type: Spontaneous
  Country: ES (occurrence: ES)
  Receive Date: 20130731
  Receipt Date: 20130731
  Transmission Date: 20140515
  Serious: Yes (Other)
  Sender: FDA-Public Use
  Company Number: ES-PFIZER INC-2013215342

PATIENT
  Sex: Male

DRUGS (8)
  1. SUNITINIB MALATE [Suspect]
     Indication: RENAL CANCER STAGE IV
     Dosage: 50 MG, 1X/DAY
     Route: 048
  2. ENALAPRIL [Concomitant]
     Dosage: 20 MG, 1X/DAY
     Route: 048
  3. CARDURAN [Concomitant]
     Dosage: 8 MG, 1X/DAY
     Route: 048
  4. AMLODIPINE [Concomitant]
     Dosage: 10 MG, 1X/DAY
     Route: 048
  5. ATORVASTATIN [Concomitant]
     Dosage: 1 DF, 1X/DAY
     Route: 048
  6. ADIRO [Concomitant]
     Dosage: 100 MG, 1X/DAY
     Route: 048
  7. ALLOPURINOL [Concomitant]
     Dosage: 100 MG, 1X/DAY
     Route: 048
  8. OMEPRAZOLE [Concomitant]
     Dosage: 20 MG, 1X/DAY
     Route: 048

REACTIONS (1)
  - Skin toxicity [Recovered/Resolved]
